FAERS Safety Report 21832859 (Version 1)
Quarter: 2023Q1

REPORT INFORMATION
  Report Type: Spontaneous
  Country: US (occurrence: US)
  Receive Date: 20230106
  Receipt Date: 20230106
  Transmission Date: 20230417
  Serious: No
  Sender: FDA-Public Use
  Company Number: US-BAUSCH-BL-2023-000151

PATIENT
  Sex: Female

DRUGS (1)
  1. JUBLIA [Suspect]
     Active Substance: EFINACONAZOLE
     Indication: Nail infection
     Route: 061
     Dates: start: 20221213, end: 20221228

REACTIONS (2)
  - Product leakage [Unknown]
  - Product use issue [Unknown]

NARRATIVE: CASE EVENT DATE: 20221228
